FAERS Safety Report 12762555 (Version 1)
Quarter: 2016Q3

REPORT INFORMATION
  Report Type: Spontaneous
  Country: US (occurrence: US)
  Receive Date: 20160920
  Receipt Date: 20160920
  Transmission Date: 20161109
  Serious: Yes (Other)
  Sender: FDA-Public Use
  Company Number: US-JNJFOC-20160809902

PATIENT
  Age: 51 Year
  Sex: Male
  Weight: 108.86 kg

DRUGS (10)
  1. COZAAR [Concomitant]
     Active Substance: LOSARTAN POTASSIUM
     Indication: BLOOD PRESSURE MEASUREMENT
     Route: 048
     Dates: start: 2015
  2. VENTOLIN [Concomitant]
     Active Substance: ALBUTEROL SULFATE
     Indication: LUNG DISORDER
     Dosage: AS NEEDED
     Route: 055
  3. GLYBURIDE. [Concomitant]
     Active Substance: GLYBURIDE
     Indication: GLUCOSE TOLERANCE IMPAIRED
     Route: 065
  4. ASPIRIN. [Concomitant]
     Active Substance: ASPIRIN
     Indication: CARDIOVASCULAR DISORDER
     Route: 048
     Dates: start: 2011
  5. STELARA [Suspect]
     Active Substance: USTEKINUMAB
     Indication: PSORIASIS
     Dosage: RECEIVES EVERY 2 TO MONTHS
     Route: 058
     Dates: start: 2013
  6. JANUVIA [Concomitant]
     Active Substance: SITAGLIPTIN PHOSPHATE
     Indication: GLUCOSE TOLERANCE IMPAIRED
     Route: 065
  7. LASIX [Concomitant]
     Active Substance: FUROSEMIDE
     Route: 048
     Dates: start: 2016
  8. STELARA [Suspect]
     Active Substance: USTEKINUMAB
     Indication: PEMPHIGUS
     Dosage: RECEIVES EVERY 2 TO MONTHS
     Route: 058
     Dates: start: 2013
  9. SINGULAIR [Concomitant]
     Active Substance: MONTELUKAST SODIUM
     Indication: LUNG DISORDER
     Route: 048
  10. CETRIZINE [Concomitant]
     Active Substance: CETIRIZINE HYDROCHLORIDE
     Indication: MULTIPLE ALLERGIES
     Route: 048
     Dates: start: 201605

REACTIONS (9)
  - Product use issue [Unknown]
  - Blood glucose increased [Unknown]
  - Blood cholesterol increased [Unknown]
  - Blood triglycerides increased [Unknown]
  - Therapeutic response decreased [Unknown]
  - Psoriasis [Unknown]
  - Oedema peripheral [Unknown]
  - Diabetic neuropathy [Unknown]
  - Off label use [Unknown]

NARRATIVE: CASE EVENT DATE: 201607
